FAERS Safety Report 7539664-2 (Version None)
Quarter: 2011Q2

REPORT INFORMATION
  Report Type: 
  Country: None (occurrence: None)
  Receive Date: 20110609
  Receipt Date: 20110609
  Transmission Date: 20111010
  Serious: Yes (Other)
  Sender: FDA-Public Use
  Company Number: None

PATIENT
  Age: 45 Year
  Sex: Female
  Weight: 65.7716 kg

DRUGS (1)
  1. DOXYCHEL HYCLATE [Suspect]
     Indication: UPPER RESPIRATORY TRACT INFECTION
     Dosage: TWICE DAILY TWICE DAILY PO
     Route: 048
     Dates: start: 20110606, end: 20110609

REACTIONS (2)
  - RASH [None]
  - ARTHRALGIA [None]
